FAERS Safety Report 23131939 (Version 2)
Quarter: 2023Q4

REPORT INFORMATION
  Report Type: Report from Study
  Country: US (occurrence: US)
  Receive Date: 20231101
  Receipt Date: 20231121
  Transmission Date: 20240110
  Serious: Yes (Other)
  Sender: FDA-Public Use
  Company Number: US-ABBVIE-5470097

PATIENT
  Sex: Female
  Weight: 56.699 kg

DRUGS (3)
  1. IMBRUVICA [Suspect]
     Active Substance: IBRUTINIB
     Indication: Chronic lymphocytic leukaemia
     Route: 048
     Dates: start: 202008
  2. PROLIA [Concomitant]
     Active Substance: DENOSUMAB
     Indication: Product used for unknown indication
     Dates: start: 202309
  3. ALLOPURINOL [Concomitant]
     Active Substance: ALLOPURINOL
     Indication: Blood uric acid

REACTIONS (3)
  - Toothache [Recovered/Resolved]
  - White blood cell count decreased [Not Recovered/Not Resolved]
  - Gout [Recovered/Resolved]

NARRATIVE: CASE EVENT DATE: 20210101
